FAERS Safety Report 14035229 (Version 2)
Quarter: 2017Q4

REPORT INFORMATION
  Report Type: Spontaneous
  Country: IT (occurrence: IT)
  Receive Date: 20171003
  Receipt Date: 20171017
  Transmission Date: 20180321
  Serious: Yes (Other)
  Sender: FDA-Public Use
  Company Number: IT-NAPPMUNDI-GBR-2017-0049338

PATIENT

DRUGS (6)
  1. DOBETIN                            /00056201/ [Concomitant]
     Active Substance: CYANOCOBALAMIN
  2. TARGIN [Suspect]
     Active Substance: NALOXONE HYDROCHLORIDE\OXYCODONE HYDROCHLORIDE
     Indication: POST HERPETIC NEURALGIA
     Dosage: UNK UNK, DAILY
     Route: 048
     Dates: start: 20161101, end: 20161110
  3. DEPALGOS [Suspect]
     Active Substance: ACETAMINOPHEN\OXYCODONE HYDROCHLORIDE
     Indication: POST HERPETIC NEURALGIA
     Dosage: UNK UNK, DAILY
     Route: 048
     Dates: start: 20161101, end: 20161110
  4. LYRICA [Concomitant]
     Active Substance: PREGABALIN
  5. EUTIROX [Concomitant]
     Active Substance: LEVOTHYROXINE SODIUM
  6. DESTIOR BRIDGE [Concomitant]

REACTIONS (3)
  - Constipation [Recovering/Resolving]
  - Faecaloma [Recovering/Resolving]
  - Abdominal pain lower [Recovering/Resolving]

NARRATIVE: CASE EVENT DATE: 20161110
